FAERS Safety Report 24793716 (Version 1)
Quarter: 2024Q4

REPORT INFORMATION
  Report Type: Spontaneous
  Country: IN (occurrence: IN)
  Receive Date: 20241231
  Receipt Date: 20241231
  Transmission Date: 20250114
  Serious: Yes (Other)
  Sender: ALKEM
  Company Number: None

PATIENT
  Age: 67 Year
  Sex: Male

DRUGS (27)
  1. TACROLIMUS [Suspect]
     Active Substance: TACROLIMUS
     Indication: Immunosuppressant drug therapy
     Dosage: 0.25 MILLIGRAM, BID (EVERY 12 HOUR), TABLET (TACROTEC)
     Route: 065
  2. Ashtoque [Concomitant]
     Indication: Product used for unknown indication
     Dosage: 1 DOSAGE FORM (1 TABLET)
     Route: 065
  3. MINERALS\VITAMINS [Concomitant]
     Active Substance: MINERALS\VITAMINS
     Indication: Product used for unknown indication
     Dosage: 1 DOSAGE FORM (1 TABLET)
     Route: 065
  4. BACTRIM DS [Concomitant]
     Active Substance: SULFAMETHOXAZOLE\TRIMETHOPRIM
     Indication: Infection prophylaxis
     Dosage: UNK (160/800 MILLIGRAM (MG))
     Route: 065
  5. CINTODAC [Concomitant]
     Indication: Product used for unknown indication
     Dosage: UNK (40/3)
     Route: 065
  6. Dolo [Concomitant]
     Indication: Product used for unknown indication
     Dosage: 650 MILLIGRAM
     Route: 065
  7. TORSEMIDE [Concomitant]
     Active Substance: TORSEMIDE
     Indication: Product used for unknown indication
     Dosage: 10 MILLIGRAM, QD (EVERY 1 DAY)
     Route: 065
  8. DUPHALAC [Concomitant]
     Active Substance: LACTULOSE
     Indication: Product used for unknown indication
     Dosage: 20 MILLILITER
     Route: 065
  9. ASPIRIN [Concomitant]
     Active Substance: ASPIRIN
     Indication: Product used for unknown indication
     Dosage: 75 MILLIGRAM, QD (EVERY 1 DAY)
     Route: 065
  10. FEBUXOSTAT [Concomitant]
     Active Substance: FEBUXOSTAT
     Indication: Product used for unknown indication
     Dosage: 40 MILLIGRAM
     Route: 065
  11. IBANDRONATE SODIUM [Concomitant]
     Active Substance: IBANDRONATE SODIUM
     Indication: Product used for unknown indication
     Dosage: 150 MILLIGRAM
     Route: 065
  12. IVABRADINE [Concomitant]
     Active Substance: IVABRADINE
     Indication: Product used for unknown indication
     Dosage: 5 MILLIGRAM, PRN (1 AS NECESSARY)
     Route: 065
  13. Magvion [Concomitant]
     Indication: Product used for unknown indication
     Dosage: 400 MILLIGRAM
     Route: 065
  14. MET XL [Concomitant]
     Indication: Product used for unknown indication
     Dosage: 12.5 MILLIGRAM, QD (EVERY 1 DAY)
     Route: 065
  15. ACETYLCYSTEINE [Concomitant]
     Active Substance: ACETYLCYSTEINE
     Indication: Product used for unknown indication
     Dosage: 600 MILLIGRAM
     Route: 065
  16. Myfotic [Concomitant]
     Indication: Immunosuppressant drug therapy
     Dosage: 180 MILLIGRAM, BID (EVERY 12 HOUR)
     Route: 065
  17. Nephro HP protein [Concomitant]
     Indication: Product used for unknown indication
     Dosage: UNK (2 SCOOPS)
     Route: 065
  18. CALCIUM CARBONATE\CHOLECALCIFEROL [Concomitant]
     Active Substance: CALCIUM CARBONATE\CHOLECALCIFEROL
     Indication: Product used for unknown indication
     Dosage: 500 MILLIGRAM
     Route: 065
  19. Sucrafil O [Concomitant]
     Indication: Product used for unknown indication
     Dosage: UNK (10 AM)
     Route: 065
  20. Sompraz D [Concomitant]
     Indication: Product used for unknown indication
     Dosage: UNK (40/30)
     Route: 065
  21. SOMPRAZ IT [Concomitant]
     Indication: Product used for unknown indication
     Dosage: UNK (40/150)
     Route: 065
  22. Tayo K [Concomitant]
     Indication: Product used for unknown indication
     Dosage: UNK (60 K)
     Route: 065
  23. URSODIOL [Concomitant]
     Active Substance: URSODIOL
     Indication: Product used for unknown indication
     Dosage: 300 MILLIGRAM
     Route: 065
  24. VALGANCICLOVIR [Concomitant]
     Active Substance: VALGANCICLOVIR
     Indication: Infection prophylaxis
     Dosage: 450 MILLIGRAM
     Route: 065
  25. VORICONAZOLE [Concomitant]
     Active Substance: VORICONAZOLE
     Indication: Infection prophylaxis
     Dosage: 200 MILLIGRAM, QD (EVERY 1 DAY, TWICE A WEEK)
     Route: 065
  26. PREDNISOLONE [Concomitant]
     Active Substance: PREDNISOLONE
     Indication: Immunosuppressant drug therapy
     Dosage: 2.5 MILLIGRAM, QD(EVERY 1 DAY)
     Route: 065
  27. XYLISTIN [Concomitant]
     Indication: Product used for unknown indication
     Dosage: 1 MILLI-INTERNATIONAL UNIT (NEBULIZATION)
     Route: 065

REACTIONS (1)
  - Hyperkalaemia [Unknown]

NARRATIVE: CASE EVENT DATE: 20230101
